FAERS Safety Report 9396097 (Version 1)
Quarter: 2013Q3

REPORT INFORMATION
  Report Type: Spontaneous
  Country: JP (occurrence: JP)
  Receive Date: 20130711
  Receipt Date: 20130711
  Transmission Date: 20140515
  Serious: Yes (Other)
  Sender: FDA-Public Use
  Company Number: JP-B.I. PHARMACEUTICALS,INC./RIDGEFIELD-2013-BI-20085YA

PATIENT
  Sex: Male

DRUGS (2)
  1. HARNAL (TAMSULOSIN) ORODISPERSABLE CR [Suspect]
     Dosage: FORMULATION: CR TABLET
     Route: 048
  2. FLIVAS [Concomitant]
     Dosage: FORMULATION: ORODISPERSIBLE CR TABLET

REACTIONS (1)
  - Aspartate aminotransferase increased [Unknown]
